FAERS Safety Report 21274901 (Version 3)
Quarter: 2022Q4

REPORT INFORMATION
  Report Type: Spontaneous
  Country: US (occurrence: US)
  Receive Date: 20220831
  Receipt Date: 20221219
  Transmission Date: 20230112
  Serious: No
  Sender: FDA-Public Use
  Company Number: US-PFIZER INC-202200591527

PATIENT
  Age: 66 Year
  Sex: Female

DRUGS (4)
  1. TIKOSYN [Suspect]
     Active Substance: DOFETILIDE
     Indication: Cardiac disorder
     Dosage: 250 UG
  2. TIKOSYN [Suspect]
     Active Substance: DOFETILIDE
     Indication: Arrhythmia
  3. TIKOSYN [Suspect]
     Active Substance: DOFETILIDE
     Indication: Atrial flutter
  4. TIKOSYN [Suspect]
     Active Substance: DOFETILIDE
     Indication: Cardiac ablation

REACTIONS (2)
  - Thyroid disorder [Unknown]
  - Therapeutic product effect incomplete [Unknown]
